FAERS Safety Report 7275111-6 (Version None)
Quarter: 2011Q1

REPORT INFORMATION
  Report Type: 
  Country: None (occurrence: None)
  Receive Date: 20110204
  Receipt Date: 20110124
  Transmission Date: 20110831
  Serious: Yes (Other)
  Sender: FDA-Public Use
  Company Number: PHHY2010CA01237

PATIENT
  Sex: Female

DRUGS (4)
  1. ZOMETA [Suspect]
     Indication: BREAST CANCER METASTATIC
     Dosage: 4 MG EVERY 4 WEEKS
     Dates: start: 20071127, end: 20100806
  2. PACLITAXEL [Concomitant]
  3. GEMCITABINE [Concomitant]
  4. CHEMOTHERAPEUTICS NOS [Concomitant]
     Dosage: UNK
     Dates: start: 20100701, end: 20101201

REACTIONS (5)
  - NEOPLASM MALIGNANT [None]
  - OSTEONECROSIS OF JAW [None]
  - RENAL CANCER [None]
  - BACK PAIN [None]
  - OVARIAN CANCER [None]
